FAERS Safety Report 24153028 (Version 2)
Quarter: 2024Q3

REPORT INFORMATION
  Report Type: Spontaneous
  Country: GB (occurrence: GB)
  Receive Date: 20240730
  Receipt Date: 20240802
  Transmission Date: 20241016
  Serious: Yes (Hospitalization)
  Sender: MYLAN
  Company Number: GB-MYLANLABS-2024M1069711

PATIENT
  Sex: Male

DRUGS (2)
  1. CLOZARIL [Suspect]
     Active Substance: CLOZAPINE
     Indication: Schizophrenia
     Dosage: UNK (19-JUL-2024: ESTIMATED DATE OF LAST DOSE OF CLOZARIL)
     Route: 048
     Dates: start: 20010701, end: 202407
  2. CLOZARIL [Suspect]
     Active Substance: CLOZAPINE
     Dosage: UNK
     Route: 048
     Dates: start: 20240728

REACTIONS (4)
  - Productive cough [Unknown]
  - Renal disorder [Unknown]
  - Confusional state [Unknown]
  - Product dose omission issue [Unknown]
